FAERS Safety Report 24437669 (Version 1)
Quarter: 2024Q4

REPORT INFORMATION
  Report Type: Spontaneous
  Country: US (occurrence: US)
  Receive Date: 20241015
  Receipt Date: 20241015
  Transmission Date: 20250115
  Serious: No
  Sender: MAYNE
  Company Number: US-MAYNE PHARMA-2024MYN000171

PATIENT

DRUGS (1)
  1. SORILUX [Suspect]
     Active Substance: CALCIPOTRIENE
     Indication: Product used for unknown indication
     Dosage: MONOTHERAPY FOR 3 DAYS
     Route: 065

REACTIONS (1)
  - Sunburn [Unknown]
